FAERS Safety Report 10257529 (Version 2)
Quarter: 2014Q2

REPORT INFORMATION
  Report Type: Spontaneous
  Country: JP (occurrence: JP)
  Receive Date: 20140625
  Receipt Date: 20140630
  Transmission Date: 20141212
  Serious: Yes (Hospitalization)
  Sender: FDA-Public Use
  Company Number: PHJP2014JP000891

PATIENT
  Age: 52 Year
  Sex: Male
  Weight: 74 kg

DRUGS (7)
  1. DORMICUM [Suspect]
     Indication: CONVULSION
  2. ALEVIATIN [Suspect]
     Indication: CONVULSION
     Dosage: UNK UKN, UNK
     Route: 065
     Dates: start: 20140522, end: 20140523
  3. CLINDAMYCIN [Suspect]
     Dosage: UNK UKN, UNK
     Route: 065
  4. TEGRETOL TAB 200MG [Suspect]
     Indication: CONVULSION
     Dosage: 400 MG, DAILY
     Route: 048
     Dates: start: 20140522, end: 20140525
  5. FAMOTIDINE [Suspect]
     Dosage: UNK UKN, UNK
     Route: 065
     Dates: end: 20140523
  6. CEFTRIAXONE [Suspect]
     Dosage: UNK UKN, UNK
     Route: 065
  7. DORMICUM [Suspect]
     Indication: ALTERED STATE OF CONSCIOUSNESS
     Dosage: UNK UKN, UNK
     Route: 065
     Dates: start: 20140520, end: 20140522

REACTIONS (3)
  - Rhabdomyolysis [Recovering/Resolving]
  - Blood creatine phosphokinase increased [Recovering/Resolving]
  - Renal impairment [Recovering/Resolving]
